FAERS Safety Report 21318757 (Version 1)
Quarter: 2022Q3

REPORT INFORMATION
  Report Type: Spontaneous
  Country: US (occurrence: US)
  Receive Date: 20220911
  Receipt Date: 20220911
  Transmission Date: 20221027
  Serious: No
  Sender: FDA-Public Use
  Company Number: US-SA-SAC20220901000002

PATIENT
  Age: 6 Year

DRUGS (1)
  1. ELOCTATE [Suspect]
     Active Substance: (1-743)-(1638-2332)-BLOOD-COAGULATION FACTOR VIII (SYNTHETIC HUMAN) FUSION PROTEIN WITH IMMUNOGLOBUL
     Dosage: 625 UNITS ( +/- 10 % )
     Route: 065

REACTIONS (2)
  - Nasopharyngitis [Recovering/Resolving]
  - Sneezing [Unknown]

NARRATIVE: CASE EVENT DATE: 20220825
